FAERS Safety Report 7716198-3 (Version None)
Quarter: 2011Q3

REPORT INFORMATION
  Report Type: 
  Country: None (occurrence: None)
  Receive Date: 20110822
  Receipt Date: 20110806
  Transmission Date: 20111222
  Serious: Yes (Hospitalization)
  Sender: FDA-Public Use
  Company Number: IPC201108-003124

PATIENT
  Age: 74 Year
  Sex: Male

DRUGS (4)
  1. METFORMIN HYDROCHLORIDE [Suspect]
     Indication: TYPE 2 DIABETES MELLITUS
     Dosage: 3 IN 1 DAY
  2. EFAVIRENZ [Suspect]
     Indication: HIV INFECTION
  3. EMTRICITABINE [Suspect]
     Indication: HIV INFECTION
  4. TENOFOVIR DISOPROSIL FUMARATE (VIREAD) [Suspect]
     Indication: HIV INFECTION
     Dosage: DAILY

REACTIONS (6)
  - LACTIC ACIDOSIS [None]
  - DEHYDRATION [None]
  - NEPHROPATHY TOXIC [None]
  - METABOLIC ACIDOSIS [None]
  - RENAL FAILURE ACUTE [None]
  - SKIN TURGOR DECREASED [None]
